FAERS Safety Report 17762264 (Version 2)
Quarter: 2020Q2

REPORT INFORMATION
  Report Type: Report from Study
  Country: BE (occurrence: BE)
  Receive Date: 20200508
  Receipt Date: 20200514
  Transmission Date: 20200714
  Serious: Yes (Other)
  Sender: FDA-Public Use
  Company Number: BE-BAYER-2020-038396

PATIENT
  Age: 59 Year
  Sex: Male

DRUGS (3)
  1. LAROTRECTINIB [Suspect]
     Active Substance: LAROTRECTINIB
     Indication: NEOPLASM MALIGNANT
     Dosage: 100 MG, BID
     Route: 048
     Dates: start: 20190821
  2. LAROTRECTINIB [Suspect]
     Active Substance: LAROTRECTINIB
     Indication: NEOPLASM MALIGNANT
     Dosage: 75 MG, BID
     Route: 048
     Dates: start: 20191023, end: 20200421
  3. LAROTRECTINIB [Suspect]
     Active Substance: LAROTRECTINIB
     Indication: NEOPLASM MALIGNANT
     Dosage: 75 MG, BID
     Route: 048
     Dates: start: 20190918, end: 20191016

REACTIONS (4)
  - Neuropathy peripheral [Recovered/Resolved with Sequelae]
  - Neutropenia [Recovered/Resolved]
  - Neoplasm malignant [None]
  - Vertigo [Recovered/Resolved]

NARRATIVE: CASE EVENT DATE: 20190821
